FAERS Safety Report 6327468-8 (Version None)
Quarter: 2009Q3

REPORT INFORMATION
  Report Type: 
  Country: None (occurrence: None)
  Receive Date: 20090821
  Receipt Date: 20090811
  Transmission Date: 20100115
  Serious: Yes (Hospitalization)
  Sender: FDA-Public Use
  Company Number: GXKR2009HR02294

PATIENT
  Age: 78 Year
  Sex: Female

DRUGS (3)
  1. AMIODARONE HCL [Suspect]
     Indication: ATRIAL FIBRILLATION
     Dosage: ORAL
     Route: 048
  2. WARFARIN SODIUM [Suspect]
     Indication: ATRIAL FIBRILLATION
     Dosage: ORAL
     Route: 048
  3. CORTICOSTEROIDS (NO INGREDIENTS/SUBSTANCES) [Suspect]
     Dosage: LOCAL

REACTIONS (18)
  - BLOOD FIBRINOGEN INCREASED [None]
  - C-REACTIVE PROTEIN INCREASED [None]
  - CATARACT [None]
  - DERMATITIS [None]
  - DRUG INTERACTION [None]
  - ECZEMA [None]
  - FIBRIN INCREASED [None]
  - HEPATIC CYST [None]
  - HYPOVENTILATION [None]
  - INTERSTITIAL LUNG DISEASE [None]
  - KERATOPATHY [None]
  - PLATELET COUNT DECREASED [None]
  - SCAB [None]
  - SKIN ATROPHY [None]
  - SKIN EROSION [None]
  - SKIN HAEMORRHAGE [None]
  - STAPHYLOCOCCAL SKIN INFECTION [None]
  - THERAPEUTIC AGENT TOXICITY [None]
